FAERS Safety Report 8991220 (Version 1)
Quarter: 2012Q4

REPORT INFORMATION
  Report Type: Spontaneous
  Country: US (occurrence: None)
  Receive Date: 20121220
  Receipt Date: 20121220
  Transmission Date: 20130627
  Serious: Yes (Hospitalization)
  Sender: FDA-Public Use
  Company Number: DKLU1087266

PATIENT
  Age: 12 Month
  Sex: Female

DRUGS (2)
  1. SABRIL [Suspect]
     Indication: INFANTILE SPASMS
     Dosage: 500 mg milligram(s), 2 in 1 D
     Dates: start: 20120531
  2. ALBUTEROL [Concomitant]

REACTIONS (1)
  - Lung disorder [None]
